FAERS Safety Report 4902628-9 (Version None)
Quarter: 2006Q1

REPORT INFORMATION
  Report Type: 
  Country: None (occurrence: None)
  Receive Date: 20060207
  Receipt Date: 20060126
  Transmission Date: 20060701
  Serious: Yes (Hospitalization)
  Sender: FDA-Public Use
  Company Number: FR-ABBOTT-06P-056-0323500-00

PATIENT

DRUGS (2)
  1. VALPROATE SODIUM [Suspect]
     Indication: INTENTIONAL OVERDOSE
     Dosage: OVERDOSE
     Route: 048
  2. VALPROATE SODIUM [Suspect]
     Indication: SUICIDE ATTEMPT

REACTIONS (3)
  - INTENTIONAL DRUG MISUSE [None]
  - OVERDOSE [None]
  - SUICIDE ATTEMPT [None]
